FAERS Safety Report 20869902 (Version 1)
Quarter: 2022Q2

REPORT INFORMATION
  Report Type: Spontaneous
  Country: US (occurrence: US)
  Receive Date: 20220525
  Receipt Date: 20220525
  Transmission Date: 20220721
  Serious: No
  Sender: FDA-Public Use
  Company Number: US-APOTEX-2022AP003183

PATIENT
  Age: 14 Year
  Sex: Female

DRUGS (8)
  1. ATOMOXETINE [Suspect]
     Active Substance: ATOMOXETINE
     Indication: Disturbance in attention
     Dosage: 10 MILLIGRAM, QD
     Route: 048
  2. METFORMIN [Suspect]
     Active Substance: METFORMIN HYDROCHLORIDE
     Indication: Product used for unknown indication
     Dosage: 500 MILLIGRAM, QD
     Route: 065
  3. RISPERIDONE [Concomitant]
     Active Substance: RISPERIDONE
     Indication: Agitation
     Dosage: 2 MILLIGRAM, BID
     Route: 048
  4. RISPERIDONE [Concomitant]
     Active Substance: RISPERIDONE
     Indication: Schizophrenia
     Dosage: 0.5 MILLIGRAM (AS NEEDED)
     Route: 048
  5. RISPERIDONE [Concomitant]
     Active Substance: RISPERIDONE
     Dosage: 3 MILLIGRAM, BID
     Route: 048
  6. SERTRALINE [Concomitant]
     Active Substance: SERTRALINE HYDROCHLORIDE
     Indication: Product used for unknown indication
     Dosage: UNK, QD (DOSE UPTO 75 MILLIGRAM)
     Route: 048
  7. SERTRALINE [Concomitant]
     Active Substance: SERTRALINE HYDROCHLORIDE
     Dosage: 50 MILLIGRAM, BID
     Route: 048
  8. BENZTROPINE [Concomitant]
     Active Substance: BENZTROPINE
     Indication: Extrapyramidal disorder
     Dosage: 1 MILLIGRAM, QD
     Route: 048

REACTIONS (3)
  - Weight decreased [Unknown]
  - Abnormal behaviour [Recovered/Resolved]
  - Condition aggravated [Recovered/Resolved]
